FAERS Safety Report 9732996 (Version 1)
Quarter: 2013Q4

REPORT INFORMATION
  Report Type: Spontaneous
  Country: US (occurrence: US)
  Receive Date: 20131204
  Receipt Date: 20131204
  Transmission Date: 20140711
  Serious: No
  Sender: FDA-Public Use
  Company Number: US-GILEAD-2009-0021749

PATIENT
  Sex: Female
  Weight: 68.95 kg

DRUGS (10)
  1. LETAIRIS [Suspect]
     Indication: PULMONARY ARTERIAL HYPERTENSION
     Route: 048
     Dates: start: 20090413
  2. ASPIRIN [Concomitant]
  3. SPIRIVA [Concomitant]
  4. SERTRALINE HYDROCHLORIDE [Concomitant]
  5. FEMARA [Concomitant]
  6. COD LIVER OIL [Concomitant]
  7. MULTIVITAMINS [Concomitant]
  8. CALCIUM +D [Concomitant]
  9. PRILOSEC [Concomitant]
  10. SULFAMETHOXAZOLE [Concomitant]

REACTIONS (1)
  - Alopecia [Unknown]
